FAERS Safety Report 15366763 (Version 1)
Quarter: 2018Q3

REPORT INFORMATION
  Report Type: Spontaneous
  Country: US (occurrence: US)
  Receive Date: 20180902
  Receipt Date: 20180902
  Transmission Date: 20181010
  Serious: No
  Sender: FDA-Public Use
  Company Number: None

PATIENT
  Age: 54 Year
  Sex: Male
  Weight: 82.35 kg

DRUGS (3)
  1. PEPCIS AC [Concomitant]
  2. ATENOLOL. [Concomitant]
     Active Substance: ATENOLOL
  3. HYDROXYZINE PAMOATE 25MG CAPS [Suspect]
     Active Substance: HYDROXYZINE PAMOATE
     Indication: ANXIETY
     Dosage: ?          QUANTITY:1 DF DOSAGE FORM;?
     Route: 048
     Dates: start: 20180830, end: 20180831

REACTIONS (8)
  - Dyspnoea [None]
  - Hallucinations, mixed [None]
  - Hallucination, tactile [None]
  - Muscle spasms [None]
  - Headache [None]
  - Dizziness [None]
  - Chest pain [None]
  - Discomfort [None]

NARRATIVE: CASE EVENT DATE: 20180831
